FAERS Safety Report 17238994 (Version 1)
Quarter: 2019Q4

REPORT INFORMATION
  Report Type: Spontaneous
  Country: US (occurrence: US)
  Receive Date: 20191211
  Receipt Date: 20191211
  Transmission Date: 20200122
  Serious: No
  Sender: FDA-Public Use
  Company Number: None

PATIENT
  Sex: Female

DRUGS (1)
  1. GONAL-F RFF [Suspect]
     Active Substance: FOLLITROPIN
     Indication: INFERTILITY FEMALE
     Dosage: ?          OTHER DOSE:75-450 UNITS;?
     Route: 058
     Dates: start: 20190702, end: 20191209

REACTIONS (1)
  - Diarrhoea [None]
